FAERS Safety Report 24291153 (Version 2)
Quarter: 2024Q3

REPORT INFORMATION
  Report Type: Report from Study
  Country: CN (occurrence: CN)
  Receive Date: 20240906
  Receipt Date: 20240913
  Transmission Date: 20241017
  Serious: Yes (Other)
  Sender: PFIZER
  Company Number: CN-TAKEDA-2023TUS083222

PATIENT
  Age: 40 Year
  Sex: Female
  Weight: 47 kg

DRUGS (31)
  1. BRENTUXIMAB VEDOTIN [Suspect]
     Active Substance: BRENTUXIMAB VEDOTIN
     Indication: Peripheral T-cell lymphoma unspecified
     Dosage: 100 MILLIGRAM, Q3WEEKS
     Route: 041
     Dates: start: 20230822
  2. PREDNISOLONE [Suspect]
     Active Substance: PREDNISOLONE
     Indication: Lymphoma
     Dosage: 80 MILLIGRAM, QD
     Route: 042
     Dates: start: 20230822, end: 20230827
  3. TUCIDINOSTAT [Suspect]
     Active Substance: TUCIDINOSTAT
     Indication: Peripheral T-cell lymphoma unspecified
     Dosage: 5 MILLIGRAM, QD
     Route: 048
     Dates: start: 20231004
  4. PROMETHAZINE [Concomitant]
     Active Substance: PROMETHAZINE HYDROCHLORIDE
     Indication: Allergy prophylaxis
     Dosage: 25 MILLIGRAM
     Route: 030
     Dates: start: 20230822, end: 20230822
  5. DEXAMETHASONE SODIUM PHOSPHATE [Concomitant]
     Active Substance: DEXAMETHASONE PHOSPHATE\DEXAMETHASONE SODIUM PHOSPHATE
     Indication: Infection prophylaxis
     Dosage: 5 MILLIGRAM
     Route: 042
     Dates: start: 20230822, end: 20230822
  6. DEXAMETHASONE SODIUM PHOSPHATE [Concomitant]
     Active Substance: DEXAMETHASONE PHOSPHATE\DEXAMETHASONE SODIUM PHOSPHATE
     Indication: Allergy prophylaxis
  7. ACETAMINOPHEN\ASPIRIN\CAFFEINE [Concomitant]
     Active Substance: ACETAMINOPHEN\ASPIRIN\CAFFEINE
     Indication: Pyrexia
     Dosage: UNK
     Route: 048
     Dates: start: 20230822, end: 20230822
  8. CYCLOPHOSPHAMIDE [Concomitant]
     Active Substance: CYCLOPHOSPHAMIDE
     Indication: Lymphoma
     Dosage: 1 GRAM
     Route: 042
     Dates: start: 20230823, end: 20230823
  9. EPIRUBICIN [Concomitant]
     Active Substance: EPIRUBICIN
     Indication: Lymphoma
     Dosage: 90 MILLIGRAM
     Route: 042
     Dates: start: 20230823, end: 20230823
  10. TROPISETRON HYDROCHLORIDE [Concomitant]
     Active Substance: TROPISETRON HYDROCHLORIDE
     Indication: Vomiting
     Dosage: 5 MILLILITER
     Route: 042
     Dates: start: 20230823, end: 20230823
  11. TROPISETRON HYDROCHLORIDE [Concomitant]
     Active Substance: TROPISETRON HYDROCHLORIDE
     Dosage: 5 MILLILITER, QD
     Route: 042
     Dates: start: 20230823, end: 20230824
  12. CYTARABINE [Concomitant]
     Active Substance: CYTARABINE
     Indication: Lymphoma
     Dosage: 75 MILLIGRAM
     Route: 037
     Dates: start: 20230825, end: 20230825
  13. METHOTREXATE [Concomitant]
     Active Substance: METHOTREXATE
     Indication: Lymphoma
     Dosage: 15 MILLIGRAM
     Route: 037
     Dates: start: 20230825, end: 20230825
  14. LEVOFLOXACIN [Concomitant]
     Active Substance: LEVOFLOXACIN
     Indication: Soft tissue infection
     Dosage: 5 MILLILITER
     Route: 050
     Dates: start: 20230825, end: 20230825
  15. MOTIDINE [Concomitant]
     Indication: Prophylaxis
     Dosage: 20 MILLIGRAM, BID
     Route: 042
     Dates: start: 20230815, end: 20230904
  16. CASPOFUNGIN [Concomitant]
     Active Substance: CASPOFUNGIN
     Indication: Urinary tract infection
     Dosage: 50 MILLIGRAM, QD
     Route: 042
     Dates: start: 20230815, end: 20230828
  17. CASPOFUNGIN [Concomitant]
     Active Substance: CASPOFUNGIN
     Indication: Epstein-Barr virus infection
  18. MOXIFLOXACIN [Concomitant]
     Active Substance: MOXIFLOXACIN
     Indication: Anti-infective therapy
     Dosage: 0.40 GRAM, QD
     Route: 042
     Dates: start: 20230815, end: 20230826
  19. FERRIC POLYSACCHARIDE COMPLEX [Concomitant]
     Active Substance: FERRIC POLYSACCHARIDE COMPLEX
     Indication: Mineral supplementation
     Dosage: 300 MILLIGRAM, QD
     Route: 048
     Dates: start: 20230815, end: 20230904
  20. RUPATADINE FUMARATE [Concomitant]
     Active Substance: RUPATADINE FUMARATE
     Indication: Antiallergic therapy
     Dosage: 10 MILLIGRAM, QD
     Route: 048
     Dates: start: 20230815, end: 20230827
  21. MAGNESIUM ISOGLYCYRRHIZINATE [Concomitant]
     Active Substance: MAGNESIUM ISOGLYCYRRHIZINATE
     Indication: Prophylaxis
     Dosage: 40 MILLILITER, QD
     Route: 042
     Dates: start: 20230816, end: 20230904
  22. SODIUM BICARBONATE [Concomitant]
     Active Substance: SODIUM BICARBONATE
     Indication: Prophylaxis
     Dosage: 100 MILLILITER, QD
     Route: 042
     Dates: start: 20230822, end: 20230826
  23. POTASSIUM CHLORIDE [Concomitant]
     Active Substance: POTASSIUM CHLORIDE
     Indication: Mineral supplementation
     Dosage: 15 MILLILITER, QD
     Route: 042
     Dates: start: 20230822, end: 20230824
  24. POTASSIUM CHLORIDE [Concomitant]
     Active Substance: POTASSIUM CHLORIDE
     Dosage: 1 GRAM, TID
     Route: 048
     Dates: start: 20230822, end: 20230904
  25. VITAMIN B6 [Concomitant]
     Active Substance: PYRIDOXINE HYDROCHLORIDE
     Indication: Mineral supplementation
     Dosage: 0.20 GRAM, QD
     Route: 042
     Dates: start: 20230822, end: 20230824
  26. VITAMIN C [Concomitant]
     Active Substance: ASCORBIC ACID
     Indication: Vitamin supplementation
     Dosage: 2 GRAM, QD
     Route: 042
     Dates: start: 20230822, end: 20230824
  27. GLUTATHIONE [Concomitant]
     Active Substance: GLUTATHIONE
     Indication: Prophylaxis
     Dosage: 2.4 GRAM, QD
     Route: 042
     Dates: start: 20230823, end: 20230904
  28. METHYLCOBALAMIN [Concomitant]
     Active Substance: METHYLCOBALAMIN
     Indication: Vitamin supplementation
     Dosage: 500 MICROGRAM, QD
     Route: 042
     Dates: start: 20230823, end: 20230904
  29. AMLODIPINE BESYLATE [Concomitant]
     Active Substance: AMLODIPINE BESYLATE
     Indication: Hypertension
     Dosage: 5 MILLIGRAM, QD
     Route: 048
     Dates: start: 20230825, end: 20230904
  30. FAMOTIDINE [Concomitant]
     Active Substance: FAMOTIDINE
     Indication: Prophylaxis
     Dosage: 20 MILLIGRAM, BID
     Route: 042
     Dates: start: 20230815, end: 20230904
  31. HEMOCOAGULASE [Concomitant]
     Indication: Haemostasis
     Dosage: 1000 INTERNATIONAL UNIT, BID
     Route: 042
     Dates: start: 20230815, end: 20230823

REACTIONS (11)
  - Cardiac failure [Recovered/Resolved]
  - Hypokalaemia [Recovering/Resolving]
  - Hyperthyroidism [Not Recovered/Not Resolved]
  - Leukopenia [Not Recovered/Not Resolved]
  - Pyrexia [Recovered/Resolved]
  - Albumin urine present [Recovered/Resolved]
  - Hypofibrinogenaemia [Recovered/Resolved]
  - Hepatic function abnormal [Recovered/Resolved]
  - Platelet count decreased [Not Recovered/Not Resolved]
  - Anaemia [Not Recovered/Not Resolved]
  - Off label use [Unknown]

NARRATIVE: CASE EVENT DATE: 20230822
